FAERS Safety Report 8422125-6 (Version None)
Quarter: 2012Q2

REPORT INFORMATION
  Report Type: 
  Country: None (occurrence: None)
  Receive Date: 20120608
  Receipt Date: 20120604
  Transmission Date: 20120825
  Serious: Yes (Other)
  Sender: FDA-Public Use
  Company Number: PHHY2011CA18059

PATIENT
  Sex: Male

DRUGS (4)
  1. ZOLEDRONOC ACID [Suspect]
     Dosage: UNK
     Route: 042
     Dates: start: 20120530
  2. ZOLEDRONOC ACID [Suspect]
     Indication: OSTEOPOROSIS
     Dosage: UNK
     Route: 042
     Dates: start: 20100322
  3. ANTICOAGULANTS [Concomitant]
  4. ZOLEDRONOC ACID [Suspect]
     Dosage: UNK
     Route: 042
     Dates: start: 20110524

REACTIONS (7)
  - CARPAL TUNNEL SYNDROME [None]
  - FAECES DISCOLOURED [None]
  - BLOOD DISORDER [None]
  - RENAL IMPAIRMENT [None]
  - HAEMATOCHEZIA [None]
  - INAPPROPRIATE SCHEDULE OF DRUG ADMINISTRATION [None]
  - NASAL CONGESTION [None]
